FAERS Safety Report 13227391 (Version 3)
Quarter: 2017Q1

REPORT INFORMATION
  Report Type: Report from Study
  Country: CZ (occurrence: CZ)
  Receive Date: 20170213
  Receipt Date: 20170227
  Transmission Date: 20170428
  Serious: Yes (Hospitalization)
  Sender: FDA-Public Use
  Company Number: CZ-JNJFOC-20170211271

PATIENT
  Age: 50 Year
  Sex: Male
  Weight: 87 kg

DRUGS (2)
  1. SIMPONI [Suspect]
     Active Substance: GOLIMUMAB
     Indication: RHEUMATOID ARTHRITIS
     Route: 058
     Dates: start: 20151013, end: 20161010
  2. SIMPONI [Suspect]
     Active Substance: GOLIMUMAB
     Indication: ANKYLOSING SPONDYLITIS
     Route: 058
     Dates: start: 20151013, end: 20161010

REACTIONS (1)
  - Lung adenocarcinoma [Recovering/Resolving]

NARRATIVE: CASE EVENT DATE: 20160927
